FAERS Safety Report 16067888 (Version 1)
Quarter: 2019Q1

REPORT INFORMATION
  Report Type: Spontaneous
  Country: FR (occurrence: FR)
  Receive Date: 20190313
  Receipt Date: 20190313
  Transmission Date: 20190418
  Serious: Yes (Other)
  Sender: FDA-Public Use
  Company Number: FR-JNJFOC-20190308993

PATIENT

DRUGS (1)
  1. ADRIAMYCIN [Suspect]
     Active Substance: DOXORUBICIN HYDROCHLORIDE
     Indication: MONOCLONAL IMMUNOGLOBULIN PRESENT
     Route: 065

REACTIONS (5)
  - Cardiotoxicity [Unknown]
  - Neoplasm [Unknown]
  - Off label use [Unknown]
  - Product use in unapproved indication [Unknown]
  - Cytopenia [Unknown]
